FAERS Safety Report 21983045 (Version 1)
Quarter: 2023Q1

REPORT INFORMATION
  Report Type: Spontaneous
  Country: RU (occurrence: RU)
  Receive Date: 20230213
  Receipt Date: 20230213
  Transmission Date: 20230417
  Serious: Yes (Hospitalization)
  Sender: FDA-Public Use
  Company Number: RU-drreddys-LIT/RUS/22/0158782

PATIENT
  Age: 31 Year
  Sex: Female

DRUGS (3)
  1. CETIRIZINE HYDROCHLORIDE [Suspect]
     Active Substance: CETIRIZINE HYDROCHLORIDE
     Indication: Antiallergic therapy
  2. LORATADINE [Suspect]
     Active Substance: LORATADINE
     Indication: Antiallergic therapy
  3. THYMUS VULGARIS (N) (HOMEOPATHIC TINCTURE) [Suspect]
     Active Substance: HOMEOPATHICS
     Indication: Cough

REACTIONS (12)
  - Oral allergy syndrome [Recovering/Resolving]
  - Dermatitis atopic [Recovering/Resolving]
  - Sensitisation [Recovering/Resolving]
  - Type IV hypersensitivity reaction [Recovering/Resolving]
  - Conjunctivitis allergic [Recovering/Resolving]
  - Enterocolitis [Recovering/Resolving]
  - Multiple allergies [Recovering/Resolving]
  - Nasal congestion [Recovering/Resolving]
  - Lacrimation increased [Recovering/Resolving]
  - Eye pruritus [Recovering/Resolving]
  - Ocular hyperaemia [Recovering/Resolving]
  - Drug ineffective [Unknown]
